FAERS Safety Report 5675834-6 (Version None)
Quarter: 2008Q1

REPORT INFORMATION
  Report Type: 
  Country: None (occurrence: None)
  Receive Date: 20080318
  Receipt Date: 20080303
  Transmission Date: 20080703
  Serious: Yes (Other)
  Sender: FDA-Public Use
  Company Number: 2008PV034446

PATIENT
  Age: 40 Year
  Sex: Female

DRUGS (5)
  1. SYMLIN [Suspect]
     Indication: TYPE 1 DIABETES MELLITUS
     Dosage: 72 MCG;QD;SC; 60 MCG;QD;SC; 18 MCG;QD
     Route: 058
     Dates: start: 20071201, end: 20071213
  2. SYMLIN [Suspect]
     Indication: TYPE 1 DIABETES MELLITUS
     Dosage: 72 MCG;QD;SC; 60 MCG;QD;SC; 18 MCG;QD
     Route: 058
     Dates: start: 20080101, end: 20080201
  3. SYMLIN [Suspect]
     Indication: TYPE 1 DIABETES MELLITUS
     Dosage: 72 MCG;QD;SC; 60 MCG;QD;SC; 18 MCG;QD
     Route: 058
     Dates: start: 20080201
  4. HUMALOG [Concomitant]
  5. ORAL CONTRACEPTIVE NOS [Concomitant]

REACTIONS (3)
  - BLOOD GLUCOSE DECREASED [None]
  - CONFUSIONAL STATE [None]
  - TREATMENT NONCOMPLIANCE [None]
